FAERS Safety Report 17876899 (Version 2)
Quarter: 2020Q2

REPORT INFORMATION
  Report Type: Spontaneous
  Country: JP (occurrence: JP)
  Receive Date: 20200609
  Receipt Date: 20200622
  Transmission Date: 20200714
  Serious: Yes (Other)
  Sender: FDA-Public Use
  Company Number: JP-JNJFOC-20200600818

PATIENT
  Age: 46 Year
  Sex: Female

DRUGS (2)
  1. SURGICEL [Suspect]
     Active Substance: CELLULOSE, OXIDIZED\DEVICE
  2. EVICEL [Suspect]
     Active Substance: FIBRINOGEN HUMAN\THROMBIN HUMAN
     Indication: CRANIOTOMY
     Route: 065

REACTIONS (3)
  - Hemiparesis [Recovered/Resolved]
  - Product use in unapproved indication [Unknown]
  - Off label use [Unknown]
